FAERS Safety Report 8408139-0 (Version None)
Quarter: 2012Q2

REPORT INFORMATION
  Report Type: 
  Country: None (occurrence: None)
  Receive Date: 20120604
  Receipt Date: 20120523
  Transmission Date: 20120825
  Serious: No
  Sender: FDA-Public Use
  Company Number: US-ASTRAZENECA-2012SE26358

PATIENT
  Age: 65 Year
  Sex: Male
  Weight: 106.6 kg

DRUGS (4)
  1. SYMBICORT [Suspect]
     Indication: ASTHMA
     Dosage: 160/4.5 MCG 2 PUFFS, TWO TIMES A DAY
     Route: 055
  2. QVAR 40 [Concomitant]
  3. STEROIDS [Concomitant]
  4. NEBULIZER [Concomitant]

REACTIONS (3)
  - COUGH [None]
  - MALAISE [None]
  - DRUG DOSE OMISSION [None]
